FAERS Safety Report 5059787-X (Version None)
Quarter: 2006Q3

REPORT INFORMATION
  Report Type: 
  Country: None (occurrence: None)
  Receive Date: 20060724
  Receipt Date: 20060720
  Transmission Date: 20061208
  Serious: Yes (Other)
  Sender: FDA-Public Use
  Company Number: NONE

PATIENT
  Sex: Female
  Weight: 50.9 kg

DRUGS (5)
  1. VALTREX [Suspect]
     Route: 048
  2. LYRICA [Suspect]
  3. ULTRAM [Suspect]
  4. VICODIN [Suspect]
  5. NEURONTIN [Suspect]

REACTIONS (5)
  - BALANCE DISORDER [None]
  - DEPRESSION [None]
  - DIZZINESS [None]
  - HEART RATE INCREASED [None]
  - WEIGHT DECREASED [None]
